FAERS Safety Report 13003676 (Version 9)
Quarter: 2024Q1

REPORT INFORMATION
  Report Type: Spontaneous
  Country: US (occurrence: US)
  Receive Date: 20161206
  Receipt Date: 20240320
  Transmission Date: 20240409
  Serious: Yes (Other)
  Sender: FDA-Public Use
  Company Number: US-PFIZER INC-2015308077

PATIENT
  Age: 63 Year
  Sex: Female
  Weight: 73.8 kg

DRUGS (24)
  1. PREMARIN [Suspect]
     Active Substance: ESTROGENS, CONJUGATED
     Indication: Hormone replacement therapy
     Dosage: 0.9 MG, DAILY
     Route: 048
     Dates: start: 20060227
  2. PREMARIN [Suspect]
     Active Substance: ESTROGENS, CONJUGATED
     Indication: Hot flush
     Dosage: 0.625 MG, 1X/DAY
     Route: 048
     Dates: start: 2013
  3. PREMARIN [Suspect]
     Active Substance: ESTROGENS, CONJUGATED
     Indication: Hormone replacement therapy
     Dosage: 0.625 MG, 1X/DAY
     Route: 048
     Dates: start: 2015
  4. PREMARIN [Suspect]
     Active Substance: ESTROGENS, CONJUGATED
     Dosage: 0.9 MG, 1X/DAY
     Route: 048
     Dates: start: 20220613
  5. ACYCLOVIR [Concomitant]
     Active Substance: ACYCLOVIR
     Dosage: 400 MG, AS NEEDED (TAKE 1 TABLET 3 TIMES DAILY PRN FOR FIVE DAYS)
     Route: 048
     Dates: start: 20151216
  6. ALBUTEROL SULFATE [Concomitant]
     Active Substance: ALBUTEROL SULFATE
     Dosage: UNK UNK, AS NEEDED (2.5 MG/3ML) 0.083% USE ONE VIAL EVERY FOUR HOURS AS NEEDED VIA NEBULIZER
     Route: 055
     Dates: start: 20151012
  7. FLUOROURACIL [Concomitant]
     Active Substance: FLUOROURACIL
     Dosage: UNK, 2X/DAY (APPLY A THIN LAYER TO AFFECTED AREA(S) TWICE DAILY)
     Route: 061
     Dates: start: 20160628
  8. FLONASE [Concomitant]
     Active Substance: FLUTICASONE PROPIONATE
     Dosage: 2 DF, 1X/DAY (50 MCG/ACT NASAL SUSPENSION, USE 2 SPRAYS IN EACH NOSTRIL ONCE DAILY)
     Route: 045
     Dates: start: 20090312
  9. SODIUM CHLORIDE [Concomitant]
     Active Substance: SODIUM CHLORIDE
     Dosage: UNK, 3X/DAY
     Dates: start: 20160219
  10. IBUPROFEN [Concomitant]
     Active Substance: IBUPROFEN
     Dosage: 800 MG, AS NEEDED
     Route: 048
     Dates: start: 20131024
  11. IMIQUIMOD [Concomitant]
     Active Substance: IMIQUIMOD
     Dosage: UNK, 2X/DAY
     Route: 061
     Dates: start: 20160616
  12. LEVOTHYROXINE SODIUM [Concomitant]
     Active Substance: LEVOTHYROXINE SODIUM
     Dosage: 88 UG, 1X/DAY
     Route: 048
     Dates: start: 20110823
  13. OMEPRAZOLE [Concomitant]
     Active Substance: OMEPRAZOLE
     Dosage: 20 MG, 1X/DAY (EVERY MORNING BEFORE BREAKFAST)
     Route: 048
     Dates: start: 20141216
  14. OXYCODONE AND ACETAMINOPHEN [Concomitant]
     Active Substance: ACETAMINOPHEN\OXYCODONE HYDROCHLORIDE
     Indication: Pain
     Dosage: UNK, AS NEEDED (1-2 TABLETS EVERY 4-6 HOURS AS NEEDED)
     Route: 048
     Dates: start: 20100912
  15. PROCTOSOL HC [Concomitant]
     Dosage: 1 DF, 3X/DAY
     Route: 054
     Dates: start: 20150822
  16. VITAMIN D3 [Concomitant]
     Active Substance: CHOLECALCIFEROL
     Dosage: 2000 IU, UNK
     Route: 048
  17. XOPENEX HFA [Concomitant]
     Active Substance: LEVALBUTEROL TARTRATE
     Dosage: 2 DF, AS NEEDED (45 MCG/ACT INHALATION AEROSOL INHALE 2 PUFFS EVERY 4-6 HOURS AS NEEDED)
     Dates: start: 20160826
  18. FLONASE [Concomitant]
     Active Substance: FLUTICASONE PROPIONATE
     Indication: Bronchiectasis
     Dosage: UNK, DAILY (50 MCG/ACT NASAL SUSPENSION, 1-2 SPRAYS IN EACH NOSTRIL DAILY]
     Route: 045
     Dates: start: 20161107
  19. PROAIR HFA [Concomitant]
     Active Substance: ALBUTEROL SULFATE
     Indication: Bronchiectasis
     Dosage: UNK, AS NEEDED (108 (90 BASE) MCG/ACT) (INHALE 1-2 PUFFS EVERY 4-6 HOURS AS NEEDED)
     Dates: start: 20100326
  20. BENADRYL [Concomitant]
     Active Substance: DIPHENHYDRAMINE HYDROCHLORIDE
     Indication: Hiatus hernia
     Dosage: 25 MG, UNK
  21. CLOBETASOL PROPIONATE [Concomitant]
     Active Substance: CLOBETASOL PROPIONATE
     Indication: Dermatitis contact
     Dosage: UNK, 2X/DAY
     Route: 061
     Dates: start: 20141006
  22. CLOBETASOL PROPIONATE [Concomitant]
     Active Substance: CLOBETASOL PROPIONATE
     Indication: Rash
  23. TRIAMCINOLONE ACETONIDE [Concomitant]
     Active Substance: TRIAMCINOLONE ACETONIDE
     Indication: Dermatitis contact
     Dosage: UNK, 2X/DAY
     Route: 061
     Dates: start: 20140107
  24. APEXICON E [Concomitant]
     Active Substance: DIFLORASONE DIACETATE
     Indication: Pruritus
     Dosage: UNK, 1X/DAY
     Route: 061
     Dates: start: 20120314

REACTIONS (8)
  - Mycobacterium avium complex infection [Unknown]
  - Incorrect dose administered [Recovered/Resolved]
  - Product dispensing error [Unknown]
  - Migraine [Recovered/Resolved]
  - Blood thyroid stimulating hormone decreased [Unknown]
  - Type V hyperlipidaemia [Unknown]
  - Headache [Unknown]
  - Intentional product misuse [Unknown]
